FAERS Safety Report 11012366 (Version 1)
Quarter: 2015Q2

REPORT INFORMATION
  Report Type: Spontaneous
  Country: US (occurrence: None)
  Receive Date: 20150410
  Receipt Date: 20150410
  Transmission Date: 20150821
  Serious: Yes (Hospitalization)
  Sender: FDA-Public Use
  Company Number: None

PATIENT
  Age: 83 Year
  Sex: Female
  Weight: 64.9 kg

DRUGS (1)
  1. SUNITINIB MALATE [Suspect]
     Active Substance: SUNITINIB MALATE
     Dates: end: 20150405

REACTIONS (7)
  - Melaena [None]
  - Platelet count decreased [None]
  - Hypotension [None]
  - Haemoglobin decreased [None]
  - Gastric ulcer haemorrhage [None]
  - Non-cardiac chest pain [None]
  - Cold sweat [None]

NARRATIVE: CASE EVENT DATE: 20150405
